FAERS Safety Report 17488312 (Version 2)
Quarter: 2020Q1

REPORT INFORMATION
  Report Type: Spontaneous
  Country: CH (occurrence: CH)
  Receive Date: 20200303
  Receipt Date: 20200310
  Transmission Date: 20200409
  Serious: Yes (Hospitalization)
  Sender: FDA-Public Use
  Company Number: NVSC2020CH058744

PATIENT
  Age: 57 Year
  Sex: Male

DRUGS (4)
  1. ISONIAZID. [Suspect]
     Active Substance: ISONIAZID
     Indication: LATENT TUBERCULOSIS
     Dosage: UNK UKN
     Route: 065
  2. RIFAMPICIN [Interacting]
     Active Substance: RIFAMPIN
     Dosage: 600 MG, QD
     Route: 065
  3. PREDNISONE. [Interacting]
     Active Substance: PREDNISONE
     Indication: STILL^S DISEASE
     Dosage: 80 MG, QD (1 MG/KG)
     Route: 065
  4. RIFAMPICIN [Suspect]
     Active Substance: RIFAMPIN
     Indication: LATENT TUBERCULOSIS
     Dosage: UNK UKN
     Route: 065

REACTIONS (5)
  - Pyrexia [Recovered/Resolved]
  - Drug interaction [Unknown]
  - Haemodynamic instability [Recovered/Resolved]
  - Weight decreased [Unknown]
  - Abdominal pain [Unknown]
